FAERS Safety Report 8874232 (Version 2)
Quarter: 2013Q1

REPORT INFORMATION
  Report Type: Spontaneous
  Country: BR (occurrence: BR)
  Receive Date: 20121023
  Receipt Date: 20130104
  Transmission Date: 20140127
  Serious: Yes (Hospitalization)
  Sender: FDA-Public Use
  Company Number: BR-B.I. PHARMACEUTICALS,INC./RIDGEFIELD-2012-BR-01187BR

PATIENT
  Sex: Female

DRUGS (3)
  1. PRADAXA [Suspect]
     Indication: CEREBROVASCULAR ACCIDENT PROPHYLAXIS
     Dosage: 150 MG
     Route: 048
     Dates: start: 20120702, end: 20120707
  2. SIMVASTATIN [Concomitant]
     Indication: BLOOD CHOLESTEROL
  3. ATENOLOL [Concomitant]
     Indication: HYPERTENSION

REACTIONS (8)
  - Local swelling [Recovered/Resolved]
  - Local swelling [Recovered/Resolved]
  - Haematoma [Not Recovered/Not Resolved]
  - Gait disturbance [Recovered/Resolved]
  - Wound [Not Recovered/Not Resolved]
  - Wound haematoma [Not Recovered/Not Resolved]
  - Wound [Not Recovered/Not Resolved]
  - Product counterfeit [Unknown]
